FAERS Safety Report 9525499 (Version 1)
Quarter: 2013Q3

REPORT INFORMATION
  Report Type: Spontaneous
  Country: US (occurrence: US)
  Receive Date: 20130916
  Receipt Date: 20130916
  Transmission Date: 20140515
  Serious: Yes (Hospitalization)
  Sender: FDA-Public Use
  Company Number: US-BAYER-2013-110581

PATIENT
  Age: 37 Year
  Sex: Female
  Weight: 74.83 kg

DRUGS (2)
  1. YAZ [Suspect]
  2. PAROXETINE [Concomitant]
     Dosage: 20 MG, UNK
     Route: 048
     Dates: start: 20080921

REACTIONS (2)
  - Deep vein thrombosis [None]
  - Pulmonary embolism [None]
